FAERS Safety Report 7651062-X (Version None)
Quarter: 2011Q3

REPORT INFORMATION
  Report Type: 
  Country: None (occurrence: None)
  Receive Date: 20110727
  Receipt Date: 20110711
  Transmission Date: 20111222
  Serious: Yes (Life-Threatening, Hospitalization, Other)
  Sender: FDA-Public Use
  Company Number: 2011MA008576

PATIENT
  Age: 44 Year
  Sex: Female

DRUGS (6)
  1. VENLAFAXINE [Suspect]
     Indication: DEPRESSION
     Dosage: 4.5 GM; X1
  2. VENLAFAXINE [Suspect]
     Indication: INTENTIONAL OVERDOSE
     Dosage: 4.5 GM; X1
  3. DIAZEPAM [Suspect]
     Indication: DEPRESSION
     Dosage: 200 MG; X1
  4. DIAZEPAM [Suspect]
     Indication: INTENTIONAL OVERDOSE
     Dosage: 200 MG; X1
  5. LAMOTRIGINE [Suspect]
     Indication: DEPRESSION
     Dosage: 20 G; X1
  6. LAMOTRIGINE [Suspect]
     Indication: INTENTIONAL OVERDOSE
     Dosage: 20 G; X1

REACTIONS (6)
  - HAEMODIALYSIS [None]
  - SEROTONIN SYNDROME [None]
  - MULTIPLE DRUG OVERDOSE INTENTIONAL [None]
  - COMA SCALE ABNORMAL [None]
  - UNRESPONSIVE TO STIMULI [None]
  - GRAND MAL CONVULSION [None]
